FAERS Safety Report 8790776 (Version 1)
Quarter: 2012Q4

REPORT INFORMATION
  Report Type: Spontaneous
  Country: US (occurrence: None)
  Receive Date: 20120913
  Receipt Date: 20120913
  Transmission Date: 20130627
  Serious: No
  Sender: FDA-Public Use
  Company Number: None

PATIENT
  Age: 73 Year
  Sex: Female
  Weight: 103.1 kg

DRUGS (19)
  1. INSULIN ASPART [Suspect]
     Indication: DIABETES
     Dosage: 6 units TID after meals Subcutaneous
     Route: 058
     Dates: start: 20120820, end: 20120823
  2. INSULIN GLARGINE [Suspect]
     Dosage: 46 units once at bedtime Subcutaneous
     Route: 058
     Dates: start: 20120819, end: 20120823
  3. ACETAMINOPHEN [Concomitant]
  4. ALBUTEROL [Concomitant]
  5. ALLOPURINOL [Concomitant]
  6. ATORVASTATIN [Concomitant]
  7. AZITHROMYCIN [Concomitant]
  8. CETRIAXONE [Concomitant]
  9. DOCUSATE [Concomitant]
  10. ADVAIR [Concomitant]
  11. HEPARIN [Concomitant]
  12. HYDROXYZINE [Concomitant]
  13. DUONEB [Concomitant]
  14. METOPROLOL TARTRATE [Concomitant]
  15. NYSTATIN [Concomitant]
  16. ONDANSETRON [Concomitant]
  17. PREDNISONE [Concomitant]
  18. FUROSEMIDE [Concomitant]
  19. POTASSIUM CHLORIDE [Concomitant]

REACTIONS (1)
  - Blood glucose decreased [None]
